FAERS Safety Report 7785975-5 (Version None)
Quarter: 2011Q3

REPORT INFORMATION
  Report Type: 
  Country: None (occurrence: None)
  Receive Date: 20110929
  Receipt Date: 20110708
  Transmission Date: 20111222
  Serious: No
  Sender: FDA-Public Use
  Company Number: US-BAYER-2011-060380

PATIENT
  Sex: Female

DRUGS (3)
  1. PERCOCET [Concomitant]
     Indication: BACK PAIN
  2. ALEVE (CAPLET) [Suspect]
     Indication: BACK PAIN
     Route: 048
  3. ANALGESICS [Concomitant]
     Route: 062

REACTIONS (1)
  - BACK PAIN [None]
